FAERS Safety Report 17496028 (Version 1)
Quarter: 2020Q1

REPORT INFORMATION
  Report Type: Spontaneous
  Country: US (occurrence: US)
  Receive Date: 20200304
  Receipt Date: 20200304
  Transmission Date: 20200409
  Serious: Yes (Hospitalization)
  Sender: FDA-Public Use
  Company Number: None

PATIENT
  Sex: Female

DRUGS (19)
  1. CRANBERRY. [Concomitant]
     Active Substance: CRANBERRY
     Dates: start: 20180522
  2. LATANOPROST SOL [Concomitant]
     Dates: start: 20180522
  3. OMEGA 3 [Concomitant]
     Active Substance: OMEGA-3 FATTY ACIDS
     Dates: start: 20180522
  4. PROBIOTIC [Concomitant]
     Active Substance: PROBIOTICS NOS
     Dates: start: 20180522
  5. BIOTIN [Concomitant]
     Active Substance: BIOTIN
     Dates: start: 20180522
  6. CALCIUM [Concomitant]
     Active Substance: CALCIUM
     Dates: start: 20180522
  7. LOSARTAN POT [Concomitant]
     Active Substance: LOSARTAN POTASSIUM
     Dates: start: 20190913
  8. ARMODAFINIL. [Concomitant]
     Active Substance: ARMODAFINIL
     Dates: start: 20180522
  9. BACLOFEN. [Concomitant]
     Active Substance: BACLOFEN
     Dates: start: 20180522
  10. OXYBUTYNIN. [Concomitant]
     Active Substance: OXYBUTYNIN CHLORIDE
     Dates: start: 20180404
  11. GLATIRAMER [Suspect]
     Active Substance: GLATIRAMER
     Indication: MULTIPLE SCLEROSIS
     Dosage: ?          OTHER FREQUENCY:3 TIMES WEEKLY;?
     Route: 058
     Dates: start: 20180518
  12. GRAPESSED [Concomitant]
     Dates: start: 20180522
  13. VITAMIN C [Concomitant]
     Active Substance: ASCORBIC ACID
     Dates: start: 20180522
  14. ASPIRIN. [Concomitant]
     Active Substance: ASPIRIN
     Dates: start: 20180522
  15. COLLAGEN [Concomitant]
     Active Substance: COLLAGEN
     Dates: start: 20180522
  16. GLUCOSAMINE [Concomitant]
     Active Substance: GLUCOSAMINE
     Dates: start: 20190612
  17. ALENDRONATE [Concomitant]
     Active Substance: ALENDRONATE SODIUM
     Dates: start: 20180522
  18. AMPYRA [Concomitant]
     Active Substance: DALFAMPRIDINE
     Dates: start: 20180216
  19. TURMERIC [Concomitant]
     Active Substance: HERBALS\TURMERIC
     Dates: start: 20190612

REACTIONS (5)
  - Upper-airway cough syndrome [None]
  - Ingrowing nail [None]
  - Multiple allergies [None]
  - Hyperkeratosis [None]
  - Fatigue [None]
